FAERS Safety Report 19101836 (Version 1)
Quarter: 2021Q2

REPORT INFORMATION
  Report Type: Spontaneous
  Country: US (occurrence: US)
  Receive Date: 20210407
  Receipt Date: 20210407
  Transmission Date: 20210717
  Serious: No
  Sender: FDA-Public Use
  Company Number: None

PATIENT
  Age: 88 Year
  Sex: Female
  Weight: 58.06 kg

DRUGS (10)
  1. XALKORI [Suspect]
     Active Substance: CRIZOTINIB
     Indication: PANCREATIC CARCINOMA
     Route: 048
     Dates: start: 20210203, end: 20210406
  2. LEVOTHYROXINE SODIUM. [Concomitant]
     Active Substance: LEVOTHYROXINE SODIUM
  3. POTASSIUM CHLORIDE ER [Concomitant]
     Active Substance: POTASSIUM CHLORIDE
  4. PAZEO [Concomitant]
     Active Substance: OLOPATADINE HYDROCHLORIDE
  5. TOBREX [Concomitant]
     Active Substance: TOBRAMYCIN
  6. BISACODYL EC [Concomitant]
     Active Substance: BISACODYL
  7. LIOTHYRONINE SODIUM. [Concomitant]
     Active Substance: LIOTHYRONINE SODIUM
  8. FASLODEX [Concomitant]
     Active Substance: FULVESTRANT
  9. ASPIRIN ADULT [Concomitant]
  10. LORATADINE. [Concomitant]
     Active Substance: LORATADINE

REACTIONS (1)
  - Disease progression [None]

NARRATIVE: CASE EVENT DATE: 20210406
